FAERS Safety Report 7383549-1 (Version None)
Quarter: 2011Q1

REPORT INFORMATION
  Report Type: 
  Country: None (occurrence: None)
  Receive Date: 20110328
  Receipt Date: 20110328
  Transmission Date: 20110831
  Serious: Yes (Hospitalization)
  Sender: FDA-Public Use
  Company Number: None

PATIENT
  Age: 28 Year
  Sex: Female
  Weight: 85.7298 kg

DRUGS (2)
  1. CLOZAPINE [Suspect]
     Indication: SCHIZOAFFECTIVE DISORDER
     Dosage: 375MG DAILY PO CURRENT
     Route: 048
     Dates: start: 20101227, end: 20110324
  2. CITALOPRAM HYDROBROMIDE [Suspect]
     Indication: SCHIZOAFFECTIVE DISORDER
     Dosage: 30MG DAILY PO CURRENT
     Route: 048
     Dates: start: 20100823, end: 20110324

REACTIONS (1)
  - CONVULSION [None]
